FAERS Safety Report 6437851-8 (Version None)
Quarter: 2009Q4

REPORT INFORMATION
  Report Type: 
  Country: None (occurrence: None)
  Receive Date: 20091112
  Receipt Date: 20091104
  Transmission Date: 20100525
  Serious: Yes (Disabling)
  Sender: FDA-Public Use
  Company Number: JP-ASTRAZENECA-2009SE24624

PATIENT
  Sex: Female

DRUGS (5)
  1. ANAPEINE [Suspect]
     Indication: EPIDURAL ANAESTHESIA
     Dosage: DOSE UNKNOWN
     Route: 008
  2. ANAPEINE [Suspect]
     Indication: POSTOPERATIVE ANALGESIA
     Dosage: DOSE UNKNOWN
     Route: 008
  3. ANAPEINE [Suspect]
     Dosage: THE MIXTURE OF ROPIVACAINE 100 MG AND FENTANYL CITRATE 0.2 MG WAS ADMINISTERED AT 4 ML/HOUR
     Route: 008
  4. ANAPEINE [Suspect]
     Dosage: THE MIXTURE OF ROPIVACAINE 100 MG AND FENTANYL CITRATE 0.2 MG WAS ADMINISTERED AT 4 ML/HOUR
     Route: 008
  5. FENTANYL CITRATE [Concomitant]
     Indication: POSTOPERATIVE ANALGESIA
     Dosage: THE MIXTURE OF ROPIVACAINE 100MG AND FENTANYL CITRATE 0.2MG WAS ADMINISTERED AT 4ML/HOUR.
     Route: 008

REACTIONS (1)
  - LUMBAR RADICULOPATHY [None]
